FAERS Safety Report 22314273 (Version 1)
Quarter: 2023Q2

REPORT INFORMATION
  Report Type: Spontaneous
  Country: US (occurrence: US)
  Receive Date: 20230512
  Receipt Date: 20230512
  Transmission Date: 20230721
  Serious: Yes (Other)
  Sender: FDA-Public Use
  Company Number: US-INTRA-CELLULAR THERAPIES, INC.-2023ICT00636

PATIENT
  Sex: Female

DRUGS (1)
  1. CAPLYTA [Suspect]
     Active Substance: LUMATEPERONE
     Dosage: 42 MG, 1X/DAY
     Route: 048

REACTIONS (13)
  - Suicidal ideation [Unknown]
  - Paranoia [Unknown]
  - Mania [Unknown]
  - Breathing-related sleep disorder [Unknown]
  - Depression [Unknown]
  - Burning sensation [Unknown]
  - Emotional disorder [Unknown]
  - Nasal congestion [Unknown]
  - Vertigo [Unknown]
  - Anxiety [Unknown]
  - Dry mouth [Unknown]
  - Nausea [Unknown]
  - Somnolence [Unknown]
